FAERS Safety Report 6787270-X (Version None)
Quarter: 2010Q2

REPORT INFORMATION
  Report Type: 
  Country: None (occurrence: None)
  Receive Date: 20100623
  Receipt Date: 20100611
  Transmission Date: 20101027
  Serious: Yes (Hospitalization, Other)
  Sender: FDA-Public Use
  Company Number: FR-ELI_LILLY_AND_COMPANY-FR201006003140

PATIENT
  Sex: Male
  Weight: 53 kg

DRUGS (4)
  1. ALIMTA [Suspect]
     Indication: NON-SMALL CELL LUNG CANCER
     Dosage: 825 MG, UNKNOWN
     Route: 042
     Dates: start: 20090226
  2. VITAMIN B-12 [Concomitant]
     Dates: start: 20090219
  3. FOLIC ACID [Concomitant]
     Dates: start: 20090219
  4. CORTICOSTEROIDS [Concomitant]
     Dates: start: 20090219

REACTIONS (3)
  - FEBRILE BONE MARROW APLASIA [None]
  - GENERAL PHYSICAL HEALTH DETERIORATION [None]
  - MUCOSAL INFLAMMATION [None]
